FAERS Safety Report 4741456-4 (Version None)
Quarter: 2005Q3

REPORT INFORMATION
  Report Type: 
  Country: None (occurrence: None)
  Receive Date: 20050808
  Receipt Date: 20050726
  Transmission Date: 20060218
  Serious: Yes (Other)
  Sender: FDA-Public Use
  Company Number: 2005016903

PATIENT
  Age: 71 Year
  Sex: Female
  Weight: 97.0698 kg

DRUGS (3)
  1. DETROL LA [Suspect]
     Indication: INCONTINENCE
     Dosage: 4 MG (4 MG, 1 IN 1 D), ORAL
     Route: 048
  2. PREVACID [Concomitant]
  3. VITAMINS (VITAMINS) [Concomitant]

REACTIONS (4)
  - DRUG INEFFECTIVE [None]
  - HAEMORRHAGE [None]
  - OVARIAN NEOPLASM [None]
  - UTERINE CANCER [None]
